FAERS Safety Report 11197295 (Version 3)
Quarter: 2015Q4

REPORT INFORMATION
  Report Type: Spontaneous
  Country: US (occurrence: US)
  Receive Date: 20150617
  Receipt Date: 20151013
  Transmission Date: 20160304
  Serious: No
  Sender: FDA-Public Use
  Company Number: US-PFIZER INC-2015198911

PATIENT
  Age: 53 Year
  Sex: Female

DRUGS (1)
  1. SUTENT [Suspect]
     Active Substance: SUNITINIB MALATE
     Indication: NEOPLASM MALIGNANT
     Dosage: 50 MG, 1X/DAY
     Route: 048

REACTIONS (13)
  - Sleep disorder [Unknown]
  - Dry skin [Unknown]
  - Rash pruritic [Unknown]
  - Diarrhoea [Unknown]
  - Pain in extremity [Unknown]
  - Alopecia [Unknown]
  - Anxiety [Unknown]
  - Somnolence [Unknown]
  - Stomatitis [Unknown]
  - Dysgeusia [Unknown]
  - Decreased appetite [Unknown]
  - Pruritus [Unknown]
  - Peripheral sensory neuropathy [Unknown]
